FAERS Safety Report 8107245-8 (Version None)
Quarter: 2011Q4

REPORT INFORMATION
  Report Type: 
  Country: None (occurrence: None)
  Receive Date: 20111227
  Receipt Date: 20111128
  Transmission Date: 20120403
  Serious: No
  Sender: FDA-Public Use
  Company Number: PHEH2011US010361

PATIENT
  Age: 70 Year
  Sex: Female

DRUGS (2)
  1. TOPROL-XL [Concomitant]
  2. GILENYA [Suspect]
     Indication: MULTIPLE SCLEROSIS
     Dosage: 0.5 MG, QD, ORAL
     Route: 048
     Dates: start: 20111101

REACTIONS (7)
  - CHILLS [None]
  - FLUSHING [None]
  - VAGINAL MUCOSAL BLISTERING [None]
  - RASH [None]
  - ACNE [None]
  - HYPERTENSION [None]
  - CONSTIPATION [None]
